FAERS Safety Report 15336299 (Version 24)
Quarter: 2019Q1

REPORT INFORMATION
  Report Type: Spontaneous
  Country: US (occurrence: US)
  Receive Date: 20180830
  Receipt Date: 20190110
  Transmission Date: 20190417
  Serious: Yes (Hospitalization)
  Sender: FDA-Public Use
  Company Number: US-ACTELION-A-NJ2018-177717

PATIENT
  Age: 37 Year
  Sex: Female
  Weight: 43.99 kg

DRUGS (12)
  1. REVATIO [Concomitant]
     Active Substance: SILDENAFIL CITRATE
     Dosage: UNK
  2. ALDACTONE [Concomitant]
     Active Substance: SPIRONOLACTONE
     Dosage: UNK
  3. VELETRI [Suspect]
     Active Substance: EPOPROSTENOL
     Dosage: 11 NG/KG, PER MIN
     Route: 042
  4. OPSUMIT [Suspect]
     Active Substance: MACITENTAN
     Indication: PULMONARY ARTERIAL HYPERTENSION
     Dosage: 20 MG, QD
     Route: 048
  5. BUMEX [Concomitant]
     Active Substance: BUMETANIDE
     Dosage: UNK
  6. TYVASO [Suspect]
     Active Substance: TREPROSTINIL
     Indication: PULMONARY ARTERIAL HYPERTENSION
     Dosage: UNK
     Route: 055
     Dates: start: 20180518
  7. SYNTHROID [Concomitant]
     Active Substance: LEVOTHYROXINE SODIUM
     Dosage: UNK
  8. PRILOSEC [Concomitant]
     Active Substance: OMEPRAZOLE MAGNESIUM
     Dosage: UNK
  9. VELETRI [Suspect]
     Active Substance: EPOPROSTENOL
     Indication: PULMONARY ARTERIAL HYPERTENSION
     Dosage: 31 NG/KG, PER MIN
     Route: 042
     Dates: start: 20180918, end: 20181213
  10. VELETRI [Suspect]
     Active Substance: EPOPROSTENOL
     Dosage: 30 NG/KG, PER MIN
     Route: 042
  11. VELETRI [Suspect]
     Active Substance: EPOPROSTENOL
     Dosage: 29 NG/KG, PER MIN
     Route: 042
     Dates: start: 201808
  12. VELETRI [Suspect]
     Active Substance: EPOPROSTENOL
     Dosage: 28.5 NG/KG, PER MIN
     Route: 042

REACTIONS (30)
  - Hypotension [Recovered/Resolved]
  - Catheter site pruritus [Unknown]
  - Lung transplant [Recovering/Resolving]
  - Pulmonary arterial hypertension [Not Recovered/Not Resolved]
  - Asthenia [Not Recovered/Not Resolved]
  - Blood bilirubin increased [Recovered/Resolved]
  - Ascites [Recovered/Resolved]
  - Acute kidney injury [Recovered/Resolved]
  - Dehydration [Unknown]
  - Abdominal pain upper [Recovered/Resolved]
  - Aspartate aminotransferase increased [Recovered/Resolved]
  - Liver function test increased [Recovered/Resolved]
  - Fatigue [Not Recovered/Not Resolved]
  - Hepatic congestion [Recovered/Resolved]
  - Blood sodium decreased [Recovered/Resolved]
  - Gastrooesophageal reflux disease [Unknown]
  - Blood potassium increased [Recovered/Resolved]
  - Fluid retention [Unknown]
  - Alanine aminotransferase increased [Recovered/Resolved]
  - Flatulence [Unknown]
  - Abdominal discomfort [Unknown]
  - Right ventricular failure [Not Recovered/Not Resolved]
  - Vomiting [Recovered/Resolved]
  - Splenomegaly [Recovered/Resolved]
  - Oedema [Unknown]
  - Lipase increased [Unknown]
  - Diarrhoea [Unknown]
  - Cardiac disorder [Unknown]
  - Condition aggravated [Not Recovered/Not Resolved]
  - Nausea [Recovered/Resolved]

NARRATIVE: CASE EVENT DATE: 201810
